FAERS Safety Report 23707405 (Version 1)
Quarter: 2024Q2

REPORT INFORMATION
  Report Type: Spontaneous
  Country: FR (occurrence: FR)
  Receive Date: 20240404
  Receipt Date: 20240404
  Transmission Date: 20240715
  Serious: Yes (Other)
  Sender: FDA-Public Use
  Company Number: None

PATIENT
  Age: 65 Year
  Sex: Female
  Weight: 85 kg

DRUGS (2)
  1. FLUOXETINE [Interacting]
     Active Substance: FLUOXETINE HYDROCHLORIDE
     Indication: Product used for unknown indication
     Dosage: UNK
     Route: 048
  2. FESOTERODINE FUMARATE [Interacting]
     Active Substance: FESOTERODINE FUMARATE
     Indication: Post procedural urine leak
     Dosage: 1 DOSAGE FORM, QD
     Route: 048
     Dates: start: 20240221, end: 20240227

REACTIONS (5)
  - Anticholinergic syndrome [Recovering/Resolving]
  - Vertigo [Recovering/Resolving]
  - Gingival bleeding [Recovering/Resolving]
  - Headache [Recovering/Resolving]
  - Drug interaction [Recovering/Resolving]
